FAERS Safety Report 22270947 (Version 1)
Quarter: 2023Q2

REPORT INFORMATION
  Report Type: Spontaneous
  Country: US (occurrence: None)
  Receive Date: 20230428
  Receipt Date: 20230428
  Transmission Date: 20230721
  Serious: Yes (Other)
  Sender: FDA-Public Use
  Company Number: None

PATIENT
  Sex: Female

DRUGS (7)
  1. PROGRAF [Suspect]
     Active Substance: TACROLIMUS
     Indication: Lung transplant
     Dosage: OTHER QUANTITY : 0.5 MG;?FREQUENCY : AS DIRECTED;?TAKE 1 CAPSULE (0.5 MG) BY MOUTH EVERY MORNING AND
     Route: 048
     Dates: start: 20220518
  2. AZITHROMYCIN [Concomitant]
     Active Substance: AZITHROMYCIN
  3. MAGNESIUM [Concomitant]
     Active Substance: MAGNESIUM
  4. PRILOSEC [Concomitant]
     Active Substance: OMEPRAZOLE MAGNESIUM
  5. RAPAMUNE [Concomitant]
     Active Substance: SIROLIMUS
  6. TYLENOL [Concomitant]
     Active Substance: ACETAMINOPHEN
  7. VITAMIN C [Concomitant]
     Active Substance: ASCORBIC ACID

REACTIONS (1)
  - Procedural pain [None]
